FAERS Safety Report 10132418 (Version 3)
Quarter: 2016Q1

REPORT INFORMATION
  Report Type: Spontaneous
  Country: US (occurrence: US)
  Receive Date: 20140428
  Receipt Date: 20160113
  Transmission Date: 20160525
  Serious: Yes (Hospitalization)
  Sender: FDA-Public Use
  Company Number: US-BAYER-2014-058822

PATIENT
  Age: 22 Year
  Sex: Female
  Weight: 82 kg

DRUGS (12)
  1. RELPAX [Concomitant]
     Active Substance: ELETRIPTAN HYDROBROMIDE
  2. IMITREX [Concomitant]
     Active Substance: SUMATRIPTAN SUCCINATE
     Indication: MIGRAINE
     Dosage: 50 MG, UNK
     Dates: start: 20120727, end: 20120729
  3. SUMATRIPTAN SUCCINATE. [Concomitant]
     Active Substance: SUMATRIPTAN SUCCINATE
     Dosage: 50 MG, UNK
  4. EPIDUO [Concomitant]
     Active Substance: ADAPALENE\BENZOYL PEROXIDE
  5. YAZ [Suspect]
     Active Substance: DROSPIRENONE\ETHINYL ESTRADIOL
     Indication: PREMENSTRUAL SYNDROME
  6. YAZ [Suspect]
     Active Substance: DROSPIRENONE\ETHINYL ESTRADIOL
     Indication: CONTRACEPTION
     Dosage: UNK
     Dates: start: 200805, end: 20120730
  7. NABUMETONE. [Concomitant]
     Active Substance: NABUMETONE
  8. YAZ [Suspect]
     Active Substance: DROSPIRENONE\ETHINYL ESTRADIOL
     Indication: ACNE
  9. ADVEL [Concomitant]
     Dosage: UNK, PRN
  10. DORYX [DOXYCYCLINE] [Concomitant]
     Indication: ACNE
     Dosage: 150 MG, QD
     Dates: start: 201203, end: 20120730
  11. ACNEGEL [Concomitant]
  12. DOXYCYCLINE. [Concomitant]
     Active Substance: DOXYCYCLINE

REACTIONS (8)
  - Pain [None]
  - Thrombosis [None]
  - Injury [None]
  - Anxiety [None]
  - Anhedonia [None]
  - Cerebrovascular accident [None]
  - Thalamic infarction [Recovered/Resolved]
  - Emotional distress [None]

NARRATIVE: CASE EVENT DATE: 20120730
